FAERS Safety Report 6520438-6 (Version None)
Quarter: 2009Q4

REPORT INFORMATION
  Report Type: 
  Country: None (occurrence: None)
  Receive Date: 20091229
  Receipt Date: 20091223
  Transmission Date: 20100525
  Serious: Yes (Death, Hospitalization)
  Sender: FDA-Public Use
  Company Number: PHHY2009GB39114

PATIENT
  Sex: Male

DRUGS (12)
  1. CLOZARIL [Suspect]
     Indication: SCHIZOPHRENIA
     Dosage: 100 MG/DAY
     Dates: start: 20090217
  2. PRE-ADMISSION DRUG THERAPY [Concomitant]
  3. SODIUM PICOSULFATE [Concomitant]
     Dosage: 10-20ML EVERY 12 HOURS WHEN REQUIRED
  4. BENDROFLUMETHIAZIDE [Concomitant]
     Dosage: 2.5MG ONE EACH MORNING
  5. FERROUS SULFATE TAB [Concomitant]
     Dosage: 200 MG, BID
  6. FLUOXETINE [Concomitant]
     Dosage: 4 MG, QD
  7. LERCANICIPINE HYDROCHLORIDE [Concomitant]
     Dosage: 20 MG ONE EACH MORNING
  8. LORAZEPAM [Concomitant]
     Dosage: 1MG ONE TABLET EVERY 6 HOURS
  9. OMEPRAZOLE [Concomitant]
     Dosage: ONE OD
  10. VENLAFAXINE [Concomitant]
     Dosage: 75MG TWO TABLETS BD
  11. MACROGOL [Concomitant]
     Dosage: ONE SACHET TWICE DAILY
  12. MORPHINE SULFATE [Concomitant]
     Dosage: 10MG ONE TWICE DAILY

REACTIONS (6)
  - ABDOMINAL DISCOMFORT [None]
  - ABDOMINAL PAIN [None]
  - GASTRIC CANCER [None]
  - GASTROINTESTINAL CARCINOMA [None]
  - MALAISE [None]
  - WEIGHT DECREASED [None]
